FAERS Safety Report 6274399-8 (Version None)
Quarter: 2009Q3

REPORT INFORMATION
  Report Type: 
  Country: None (occurrence: None)
  Receive Date: 20090716
  Receipt Date: 20090714
  Transmission Date: 20100115
  Serious: Yes (Other)
  Sender: FDA-Public Use
  Company Number: SP02425

PATIENT
  Age: 64 Year
  Sex: Male

DRUGS (3)
  1. OSMOPREP [Suspect]
     Indication: COLONOSCOPY
     Dosage: 30 TABLETS, ORAL
     Route: 048
     Dates: start: 20081002, end: 20081003
  2. AVALIDE [Concomitant]
  3. AVAPRO [Concomitant]

REACTIONS (7)
  - ASTHENIA [None]
  - COLD SWEAT [None]
  - DIZZINESS [None]
  - HYPOPHAGIA [None]
  - NAUSEA [None]
  - PALPITATIONS [None]
  - RENAL IMPAIRMENT [None]
